FAERS Safety Report 8091376-5 (Version None)
Quarter: 2012Q1

REPORT INFORMATION
  Report Type: 
  Country: None (occurrence: None)
  Receive Date: 20120129
  Receipt Date: 20111031
  Transmission Date: 20120608
  Serious: No
  Sender: FDA-Public Use
  Company Number: US-ABBOTT-11P-163-0870327-00

PATIENT
  Age: 32 Year
  Sex: Male

DRUGS (3)
  1. BYSTOLIC [Concomitant]
  2. HUMIRA [Suspect]
     Indication: PSORIASIS
  3. BYSTOLIC [Concomitant]
     Indication: HYPERTENSION

REACTIONS (2)
  - ARTHRALGIA [None]
  - HYPOAESTHESIA [None]
